FAERS Safety Report 6328631-2 (Version None)
Quarter: 2009Q3

REPORT INFORMATION
  Report Type: 
  Country: None (occurrence: None)
  Receive Date: 20090824
  Receipt Date: 20090824
  Transmission Date: 20100115
  Serious: Yes (Other)
  Sender: FDA-Public Use
  Company Number: None

PATIENT
  Sex: Female

DRUGS (1)
  1. ABILIFY [Suspect]
     Indication: SUICIDAL IDEATION
     Dosage: 10MG BID PO
     Route: 048
     Dates: start: 20090615, end: 20090721

REACTIONS (11)
  - ASTHENIA [None]
  - DRY MOUTH [None]
  - FATIGUE [None]
  - GAIT DISTURBANCE [None]
  - OEDEMA PERIPHERAL [None]
  - PAIN [None]
  - POLLAKIURIA [None]
  - RESTLESSNESS [None]
  - TREMOR [None]
  - VISION BLURRED [None]
  - WEIGHT INCREASED [None]
